FAERS Safety Report 23121909 (Version 1)
Quarter: 2023Q4

REPORT INFORMATION
  Report Type: Report from Study
  Country: US (occurrence: US)
  Receive Date: 20231030
  Receipt Date: 20231030
  Transmission Date: 20240110
  Serious: Yes (Other)
  Sender: FDA-Public Use
  Company Number: US-ABBVIE-22K-163-4487023-00

PATIENT
  Age: 80 Year
  Sex: Male

DRUGS (4)
  1. HUMIRA [Suspect]
     Active Substance: ADALIMUMAB
     Indication: Psoriasis
     Dosage: CITRATE FREE
     Route: 058
     Dates: start: 20200615
  2. HUMIRA [Suspect]
     Active Substance: ADALIMUMAB
     Indication: Rheumatoid arthritis
  3. MODERNA COVID-19 VACCINE [Concomitant]
     Active Substance: ELASOMERAN
     Indication: COVID-19 immunisation
     Dosage: TIME INTERVAL: 1 TOTAL: COVID VACCINE, ONE IN ONCE
     Route: 030
  4. MODERNA COVID-19 VACCINE [Concomitant]
     Active Substance: ELASOMERAN
     Indication: COVID-19 immunisation
     Dosage: TIME INTERVAL: 1 TOTAL: BOOSTER VACCINE, ONE IN ONCE
     Route: 030

REACTIONS (11)
  - Neoplasm malignant [Recovering/Resolving]
  - Dystonia [Not Recovered/Not Resolved]
  - Scratch [Unknown]
  - Hyperaesthesia [Recovered/Resolved]
  - Dizziness [Not Recovered/Not Resolved]
  - Pain of skin [Unknown]
  - COVID-19 [Recovered/Resolved]
  - Fall [Unknown]
  - Blood pressure abnormal [Unknown]
  - Loss of consciousness [Unknown]
  - Scratch [Unknown]

NARRATIVE: CASE EVENT DATE: 20211223
